FAERS Safety Report 11294649 (Version 1)
Quarter: 2015Q3

REPORT INFORMATION
  Report Type: Spontaneous
  Country: None (occurrence: None)
  Receive Date: 20150722
  Receipt Date: 20150722
  Transmission Date: 20151125
  Serious: Yes (Disabling, Other)
  Sender: FDA-Public Use
  Company Number: None

PATIENT
  Age: 26 Year
  Sex: Female
  Weight: 99.79 kg

DRUGS (3)
  1. MIRENA [Suspect]
     Active Substance: LEVONORGESTREL
     Indication: CONTRACEPTION
  2. IRON SUPPLEMENT [Concomitant]
     Active Substance: IRON
  3. PROGESTERONE (NORA BE) [Concomitant]

REACTIONS (3)
  - Menorrhagia [None]
  - Complication of device removal [None]
  - Procedural pain [None]
